FAERS Safety Report 9294534 (Version 1)
Quarter: 2013Q1

REPORT INFORMATION
  Report Type: Spontaneous
  Country: US (occurrence: None)
  Receive Date: 20121227
  Receipt Date: 20121227
  Transmission Date: 20140127
  Serious: Yes (Hospitalization)
  Sender: FDA-Public Use
  Company Number: PHEH2012US006733

PATIENT
  Sex: Female

DRUGS (2)
  1. MYFORTIC [Suspect]
     Indication: LIVER TRANSPLANT
  2. MYFORTIC [Suspect]
     Indication: SYSTEMIC LUPUS ERYTHEMATOSUS

REACTIONS (2)
  - Asthenia [None]
  - Fatigue [None]
